FAERS Safety Report 20463219 (Version 2)
Quarter: 2022Q2

REPORT INFORMATION
  Report Type: Report from Study
  Country: US (occurrence: US)
  Receive Date: 20220211
  Receipt Date: 20220504
  Transmission Date: 20220720
  Serious: Yes (Hospitalization)
  Sender: FDA-Public Use
  Company Number: US-ABBVIE-22P-163-4266248-00

PATIENT
  Age: 77 Year
  Sex: Male
  Weight: 80.1 kg

DRUGS (1)
  1. IBRUTINIB [Suspect]
     Active Substance: IBRUTINIB
     Indication: Chronic lymphocytic leukaemia
     Dosage: 15 CYCLES
     Route: 048
     Dates: start: 20210304, end: 20220108

REACTIONS (5)
  - Febrile neutropenia [Recovered/Resolved]
  - Pneumonia [Recovered/Resolved]
  - Lymphocyte count decreased [Recovered/Resolved]
  - Neutrophil count decreased [Recovered/Resolved]
  - White blood cell count decreased [Recovered/Resolved]

NARRATIVE: CASE EVENT DATE: 20220109
